FAERS Safety Report 8051344-6 (Version None)
Quarter: 2012Q1

REPORT INFORMATION
  Report Type: 
  Country: None (occurrence: None)
  Receive Date: 20120117
  Receipt Date: 20120113
  Transmission Date: 20120608
  Serious: Yes (Other)
  Sender: FDA-Public Use
  Company Number: US-ROCHE-788622

PATIENT
  Sex: Male
  Weight: 54.48 kg

DRUGS (3)
  1. MINOCYCLINE HYDROCHLORIDE [Concomitant]
     Indication: ACNE
  2. ACCUTANE [Suspect]
     Indication: ACNE
     Route: 065
     Dates: start: 20010824, end: 20020301
  3. TETRACYCLINE [Concomitant]
     Indication: ACNE

REACTIONS (5)
  - INTESTINAL OBSTRUCTION [None]
  - INTESTINAL HAEMORRHAGE [None]
  - EMOTIONAL DISTRESS [None]
  - INFLAMMATORY BOWEL DISEASE [None]
  - CROHN'S DISEASE [None]
